FAERS Safety Report 9248158 (Version 1)
Quarter: 2013Q2

REPORT INFORMATION
  Report Type: Spontaneous
  Country: US (occurrence: US)
  Receive Date: 20130423
  Receipt Date: 20130423
  Transmission Date: 20140414
  Serious: Yes (Hospitalization, Other)
  Sender: FDA-Public Use
  Company Number: US-SANOFI-AVENTIS-2013SA040966

PATIENT
  Age: 72 Year
  Sex: Male

DRUGS (6)
  1. DILTIAZEM [Suspect]
     Indication: PRODUCT USED FOR UNKNOWN INDICATION
     Dosage: DOSE: 240 UNITS UNSPECIFIED
     Route: 065
  2. LASIX [Suspect]
     Indication: PRODUCT USED FOR UNKNOWN INDICATION
     Route: 065
  3. XALKORI [Suspect]
     Indication: LUNG ADENOCARCINOMA STAGE IV
     Route: 065
  4. XALKORI [Suspect]
     Indication: LUNG ADENOCARCINOMA STAGE IV
     Route: 065
  5. LISINOPRIL [Suspect]
     Indication: PRODUCT USED FOR UNKNOWN INDICATION
     Route: 065
  6. SIMVASTATIN [Suspect]
     Indication: PRODUCT USED FOR UNKNOWN INDICATION
     Route: 065

REACTIONS (9)
  - Vasogenic cerebral oedema [Unknown]
  - Disease progression [Unknown]
  - Lung adenocarcinoma stage IV [Unknown]
  - Renal failure acute [Recovered/Resolved]
  - Dehydration [Recovered/Resolved]
  - Hypotension [Unknown]
  - Nausea [Recovered/Resolved]
  - Vomiting [Recovered/Resolved]
  - Diarrhoea [Unknown]
